FAERS Safety Report 23844657 (Version 1)
Quarter: 2024Q2

REPORT INFORMATION
  Report Type: Report from Study
  Country: US (occurrence: US)
  Receive Date: 20240511
  Receipt Date: 20240511
  Transmission Date: 20240716
  Serious: No
  Sender: FDA-Public Use
  Company Number: US-E2BLSMVVAL-CLI/USA/24/0006802

PATIENT
  Age: 34 Year
  Sex: Male

DRUGS (5)
  1. SAPROPTERIN DIHYDROCHLORIDE [Suspect]
     Active Substance: SAPROPTERIN DIHYDROCHLORIDE
     Indication: Phenylketonuria
     Dosage: DISSOLVE TWO 100MG POWDER PACKETS IN 4-8 OUNCES OF WATER OR APPLE JUICE DAILY ONCE WITH MEAL.
     Route: 048
     Dates: start: 20240418
  2. SAPROPTERIN DIHYDROCHLORIDE [Suspect]
     Active Substance: SAPROPTERIN DIHYDROCHLORIDE
     Indication: Phenylketonuria
     Dosage: DISSOLVE TWO 500MG POWDER PACKETS IN 4-8 OUNCES OF WATER OR APPLE JUICE DAILY ONCE WITH MEAL.
     Route: 048
     Dates: start: 20240418
  3. GLYTACTIN BUILD 20-20 [Concomitant]
     Indication: Product used for unknown indication
  4. HUMALOG [Concomitant]
     Active Substance: INSULIN LISPRO
     Indication: Product used for unknown indication
  5. MELATONIN [Concomitant]
     Active Substance: MELATONIN
     Indication: Product used for unknown indication

REACTIONS (1)
  - Product quality issue [Unknown]

NARRATIVE: CASE EVENT DATE: 20240418
